FAERS Safety Report 6039603-X (Version None)
Quarter: 2009Q1

REPORT INFORMATION
  Report Type: 
  Country: None (occurrence: None)
  Receive Date: 20090116
  Receipt Date: 20090113
  Transmission Date: 20090719
  Serious: Yes (Death)
  Sender: FDA-Public Use
  Company Number: US-BRISTOL-MYERS SQUIBB COMPANY-14470074

PATIENT
  Age: 31 Year
  Sex: Female

DRUGS (11)
  1. TRAZODONE HCL [Suspect]
     Route: 048
  2. ACETAMINOPHEN [Suspect]
     Route: 048
  3. VENLAFAXINE HCL [Suspect]
     Route: 048
  4. VALPROIC ACID [Suspect]
     Route: 048
  5. ACETAMINOPHEN AND HYDROCODONE BITARTRATE [Suspect]
     Route: 048
  6. CODEINE PHOSPHATE + PROMETHAZINE HCL [Suspect]
     Route: 048
  7. DULOXETINE HCL [Suspect]
     Route: 048
  8. PSEUDOEPHEDRINE HCL [Suspect]
     Route: 048
  9. DIPHENHYDRAMINE HCL [Suspect]
     Route: 048
  10. ETHANOL [Suspect]
     Route: 048
  11. ACETAMINOPHEN+DIPHENHYDRAMINE [Suspect]

REACTIONS (1)
  - DRUG TOXICITY [None]
